FAERS Safety Report 22635379 (Version 1)
Quarter: 2023Q2

REPORT INFORMATION
  Report Type: Spontaneous
  Country: DZ (occurrence: DZ)
  Receive Date: 20230623
  Receipt Date: 20230623
  Transmission Date: 20230721
  Serious: Yes (Hospitalization)
  Sender: FDA-Public Use
  Company Number: DZ-BoehringerIngelheim-2023-BI-245034

PATIENT
  Age: 63 Year
  Sex: Male

DRUGS (2)
  1. ALTEPLASE [Suspect]
     Active Substance: ALTEPLASE
     Indication: Cerebrovascular accident
     Route: 040
     Dates: start: 20230616, end: 20230616
  2. ALTEPLASE [Suspect]
     Active Substance: ALTEPLASE
     Dosage: THEN INFUSION OF THE MAINTENANCE DOSE BY ELECTRIC SYRINGE
     Route: 042
     Dates: start: 20230616

REACTIONS (2)
  - Vomiting [Not Recovered/Not Resolved]
  - Chills [Not Recovered/Not Resolved]

NARRATIVE: CASE EVENT DATE: 20230616
